FAERS Safety Report 10469198 (Version 1)
Quarter: 2014Q3

REPORT INFORMATION
  Report Type: Spontaneous
  Country: US (occurrence: None)
  Receive Date: 20140922
  Receipt Date: 20140922
  Transmission Date: 20150326
  Serious: Yes (Disabling, Other)
  Sender: FDA-Public Use
  Company Number: None

PATIENT
  Age: 62 Year
  Sex: Male
  Weight: 111.13 kg

DRUGS (16)
  1. VITAMIN E [Concomitant]
     Active Substance: .ALPHA.-TOCOPHEROL
  2. CANE [Concomitant]
  3. WHEELCHAIR [Concomitant]
     Active Substance: DEVICE
  4. ROLLATOR [Concomitant]
  5. VITAMIN A [Concomitant]
     Active Substance: VITAMIN A
  6. MULTI-VITAMIN [Concomitant]
     Active Substance: .ALPHA.-TOCOPHEROL ACETATE, DL-\ASCORBIC ACID\CYANOCOBALAMIN\FLUORIDE ION\FOLIC ACID\NIACIN\PYRIDOXINE\RIBOFLAVIN\THIAMINE\VITAMIN A\VITAMIN D
  7. MAGNESIUM [Concomitant]
     Active Substance: MAGNESIUM
  8. INSULIN [Concomitant]
     Active Substance: INSULIN NOS
  9. FOLIC ACID. [Concomitant]
     Active Substance: FOLIC ACID
  10. ASPIRIN. [Concomitant]
     Active Substance: ASPIRIN
  11. VITAMIN C [Concomitant]
     Active Substance: ASCORBIC ACID
  12. UP AND UP STOOL SOFTENER [Suspect]
     Active Substance: DOCUSATE SODIUM
     Indication: CONSTIPATION
     Dosage: 100 MG?(2) PILLS X (2) DAYS?(1) IN THE AM AND THE (1) HS?BY MOUTH
     Route: 048
     Dates: start: 20131213, end: 20131214
  13. VITAMIN D [Concomitant]
     Active Substance: CHOLECALCIFEROL
  14. TURMERIC [Concomitant]
     Active Substance: TURMERIC
  15. GARLIC. [Concomitant]
     Active Substance: GARLIC
  16. B12 COMPLEX [Concomitant]

REACTIONS (7)
  - Nausea [None]
  - Diabetic ketoacidosis [None]
  - Product label issue [None]
  - Circumstance or information capable of leading to medication error [None]
  - Dehydration [None]
  - Vomiting [None]
  - Diarrhoea [None]

NARRATIVE: CASE EVENT DATE: 20131214
